FAERS Safety Report 8882550 (Version 1)
Quarter: 2012Q4

REPORT INFORMATION
  Report Type: 
  Country: US (occurrence: US)
  Receive Date: 20121102
  Receipt Date: 20121102
  Transmission Date: 20130627
  Serious: Yes (Hospitalization)
  Sender: FDA-Public Use
  Company Number: US-TEVA-368036USA

PATIENT
  Age: 21 Year
  Sex: Female

DRUGS (2)
  1. MINOCYCLINE [Suspect]
     Indication: ACNE
     Route: 065
  2. ORTHO-TRI-CYCLEN LO [Concomitant]
     Route: 065

REACTIONS (1)
  - Polyarteritis nodosa [Recovering/Resolving]
